APPROVED DRUG PRODUCT: VFEND
Active Ingredient: VORICONAZOLE
Strength: 200MG
Dosage Form/Route: TABLET;ORAL
Application: N021266 | Product #002 | TE Code: AB
Applicant: PF PRISM CV
Approved: May 24, 2002 | RLD: Yes | RS: Yes | Type: RX